FAERS Safety Report 24251515 (Version 1)
Quarter: 2024Q3

REPORT INFORMATION
  Report Type: Spontaneous
  Country: JP (occurrence: JP)
  Receive Date: 20240826
  Receipt Date: 20240826
  Transmission Date: 20241017
  Serious: Yes (Death, Other)
  Sender: JAZZ
  Company Number: JP-JAZZ PHARMACEUTICALS-2024-JP-013454

PATIENT
  Age: 59 Year
  Sex: Male

DRUGS (1)
  1. VYXEOS [Suspect]
     Active Substance: CYTARABINE\DAUNORUBICIN
     Indication: Product used for unknown indication
     Dosage: 100 U/M2/DAY, QD
     Route: 042
     Dates: start: 20240712, end: 20240716

REACTIONS (1)
  - Death [Fatal]

NARRATIVE: CASE EVENT DATE: 20240816
